FAERS Safety Report 13471483 (Version 1)
Quarter: 2017Q2

REPORT INFORMATION
  Report Type: Spontaneous
  Country: US (occurrence: US)
  Receive Date: 20170421
  Receipt Date: 20170421
  Transmission Date: 20170830
  Serious: Yes (Hospitalization)
  Sender: FDA-Public Use
  Company Number: None

PATIENT
  Age: 66 Year
  Weight: 159.52 kg

DRUGS (18)
  1. ENOXAPARIN [Concomitant]
     Active Substance: ENOXAPARIN
  2. METFORMIN [Concomitant]
     Active Substance: METFORMIN HYDROCHLORIDE
  3. BACTRIM [Concomitant]
     Active Substance: SULFAMETHOXAZOLE\TRIMETHOPRIM
  4. ACETAMINOPHEN. [Concomitant]
     Active Substance: ACETAMINOPHEN
  5. CETIRIZINE [Concomitant]
     Active Substance: CETIRIZINE HYDROCHLORIDE
  6. ADVAIR DISKUS [Concomitant]
     Active Substance: FLUTICASONE PROPIONATE\SALMETEROL XINAFOATE
  7. ASPIRIIN [Concomitant]
  8. VENTOLIN [Concomitant]
     Active Substance: ALBUTEROL SULFATE
  9. PROCHLORPERAZINE. [Concomitant]
     Active Substance: PROCHLORPERAZINE
  10. OXYCODONE [Concomitant]
     Active Substance: OXYCODONE
  11. HUMALOG [Concomitant]
     Active Substance: INSULIN LISPRO
  12. ACYCLOVIR. [Concomitant]
     Active Substance: ACYCLOVIR
  13. POLYETHYLENE GLYCOL [Concomitant]
     Active Substance: POLYETHYLENE GLYCOLS
  14. SENNA [Concomitant]
     Active Substance: SENNA LEAF\SENNOSIDES\SENNOSIDES A AND B
  15. SIMVASTATIN. [Concomitant]
     Active Substance: SIMVASTATIN
  16. VITAMIN D3 [Suspect]
     Active Substance: CHOLECALCIFEROL
     Indication: VITAMIN D DEFICIENCY
     Route: 048
     Dates: start: 20170403
  17. DOCUSATE SODIUM. [Concomitant]
     Active Substance: DOCUSATE SODIUM
  18. PANTOPRAZOLE [Concomitant]
     Active Substance: PANTOPRAZOLE

REACTIONS (8)
  - Platelet count decreased [None]
  - Sepsis [None]
  - Hypotension [None]
  - Staphylococcal infection [None]
  - Haemoglobin decreased [None]
  - Leukopenia [None]
  - Blood culture positive [None]
  - Supraventricular tachycardia [None]

NARRATIVE: CASE EVENT DATE: 20170415
